FAERS Safety Report 7152299-9 (Version None)
Quarter: 2010Q4

REPORT INFORMATION
  Report Type: 
  Country: None (occurrence: None)
  Receive Date: 20101209
  Receipt Date: 20101209
  Transmission Date: 20110411
  Serious: No
  Sender: FDA-Public Use
  Company Number: None

PATIENT
  Age: 33 Year
  Sex: Female
  Weight: 95.5 kg

DRUGS (2)
  1. NEUTROGENA [Suspect]
     Indication: ACNE
     Dosage: SMALL AMOUNT APPLIED ON FINGER 1X PER DAY; 2 DAY APPLIED DIRECTLY TO SKIN
     Dates: start: 20101127
  2. NEUTROGENA [Suspect]
     Indication: ACNE
     Dosage: SMALL AMOUNT APPLIED ON FINGER 1X PER DAY; 2 DAY APPLIED DIRECTLY TO SKIN
     Dates: start: 20101128

REACTIONS (1)
  - HYPERSENSITIVITY [None]
